FAERS Safety Report 10243368 (Version 1)
Quarter: 2014Q2

REPORT INFORMATION
  Report Type: Spontaneous
  Country: IT (occurrence: IT)
  Receive Date: 20140618
  Receipt Date: 20140618
  Transmission Date: 20141212
  Serious: Yes (Hospitalization)
  Sender: FDA-Public Use
  Company Number: IT-TEVA-488356ISR

PATIENT
  Age: 47 Year
  Sex: Female

DRUGS (7)
  1. CARBOLITHIUM 300 MG [Suspect]
     Indication: BIPOLAR DISORDER
     Dosage: 900 MILLIGRAM DAILY;
     Route: 048
     Dates: start: 20131212
  2. HALDOL DECANOAS [Concomitant]
     Route: 030
  3. DELORAZEPAM [Concomitant]
     Route: 048
  4. ENTUMIN 100 MG/ML [Concomitant]
     Dosage: 15 GTT DAILY;
     Route: 048
     Dates: start: 20131212
  5. AKINETON 2 MG [Concomitant]
     Dosage: 2 MILLIGRAM DAILY;
     Route: 048
     Dates: start: 20131212
  6. ZUGLIMET 1000 MG [Concomitant]
     Indication: DIABETES MELLITUS
     Dosage: 2.5 MILLIGRAM DAILY;
     Route: 048
     Dates: start: 20131212
  7. REMERON 30 MG [Concomitant]
     Dosage: 30 MILLIGRAM DAILY;
     Dates: start: 20131212

REACTIONS (6)
  - Toxicity to various agents [Unknown]
  - Clonic convulsion [Unknown]
  - Dysarthria [Unknown]
  - Speech disorder [Unknown]
  - Vomiting [Unknown]
  - Diarrhoea [Unknown]
